FAERS Safety Report 7986059-3 (Version None)
Quarter: 2011Q4

REPORT INFORMATION
  Report Type: 
  Country: None (occurrence: None)
  Receive Date: 20111216
  Receipt Date: 20110303
  Transmission Date: 20120403
  Serious: No
  Sender: FDA-Public Use
  Company Number: US-BRISTOL-MYERS SQUIBB COMPANY-15482284

PATIENT
  Age: 62 Year
  Sex: Female
  Weight: 50 kg

DRUGS (9)
  1. ABILIFY [Suspect]
     Indication: DEPRESSION
     Dates: start: 20110107
  2. CYMBALTA [Concomitant]
  3. TRAMADOL HCL [Concomitant]
  4. CENTRUM SILVER [Concomitant]
  5. LOTREL [Concomitant]
  6. PREDNISONE [Concomitant]
     Dates: start: 20110107
  7. TRAZODONE HCL [Concomitant]
  8. VITAMIN [Concomitant]
  9. NAPROXEN (ALEVE) [Concomitant]

REACTIONS (1)
  - DYSTONIA [None]
